FAERS Safety Report 9604662 (Version 2)
Quarter: 2013Q4

REPORT INFORMATION
  Report Type: Spontaneous
  Country: US (occurrence: US)
  Receive Date: 20131008
  Receipt Date: 20131114
  Transmission Date: 20140711
  Serious: No
  Sender: FDA-Public Use
  Company Number: US-PFIZER INC-2013282591

PATIENT
  Sex: 0

DRUGS (2)
  1. XELJANZ [Suspect]
     Dosage: UNK, 2X/DAY
  2. XELJANZ [Suspect]
     Dosage: UNK, 1X/DAY

REACTIONS (1)
  - Gastrointestinal disorder [Unknown]
